FAERS Safety Report 8001560-4 (Version None)
Quarter: 2011Q4

REPORT INFORMATION
  Report Type: 
  Country: None (occurrence: None)
  Receive Date: 20111222
  Receipt Date: 20111219
  Transmission Date: 20120403
  Serious: Yes (Death)
  Sender: FDA-Public Use
  Company Number: US-PFIZER INC-2011308963

PATIENT
  Age: 50 Year
  Sex: Female

DRUGS (2)
  1. ETHANOL [Suspect]
     Route: 048
  2. ALPRAZOLAM [Suspect]
     Route: 048

REACTIONS (3)
  - DRUG ABUSE [None]
  - CARDIAC ARREST [None]
  - RESPIRATORY ARREST [None]
